FAERS Safety Report 14349247 (Version 4)
Quarter: 2019Q3

REPORT INFORMATION
  Report Type: Report from Study
  Country: JP (occurrence: JP)
  Receive Date: 20180104
  Receipt Date: 20190923
  Transmission Date: 20191004
  Serious: Yes (Hospitalization, Other)
  Sender: FDA-Public Use
  Company Number: JP-ACTELION-A-CH2017-164842

PATIENT
  Age: 23 Year
  Sex: Male

DRUGS (30)
  1. EPOPROSTENOL ACT [Suspect]
     Active Substance: EPOPROSTENOL
     Dosage: 143.0 NG/KG, PER MIN
     Route: 042
     Dates: start: 20170913, end: 20170921
  2. EPOPROSTENOL ACT [Suspect]
     Active Substance: EPOPROSTENOL
     Dosage: 153.2 NG/KG, PER MIN
     Route: 042
     Dates: start: 20170609
  3. TAKEPRON [Concomitant]
     Active Substance: LANSOPRAZOLE
  4. GLUCONSAN K [Concomitant]
     Active Substance: POTASSIUM GLUCONATE
  5. OXYGEN. [Concomitant]
     Active Substance: OXYGEN
  6. EPOPROSTENOL ACT [Suspect]
     Active Substance: EPOPROSTENOL
     Dosage: 125.5 NG/KG, PER MIN
     Route: 042
     Dates: start: 20150312
  7. EPOPROSTENOL ACT [Suspect]
     Active Substance: EPOPROSTENOL
     Dosage: 129.2 NG/KG, PER MIN
     Route: 042
     Dates: start: 20150423
  8. EPOPROSTENOL ACT [Suspect]
     Active Substance: EPOPROSTENOL
     Dosage: 139.3 NG/KG, PER MIN
     Route: 042
     Dates: start: 20150820
  9. LANSOPRAZOLE. [Concomitant]
     Active Substance: LANSOPRAZOLE
  10. LAC-B [Concomitant]
     Active Substance: BIFIDOBACTERIUM SPP.
  11. EPOPROSTENOL ACT [Suspect]
     Active Substance: EPOPROSTENOL
     Dosage: 143.0 NG/KG, PER MIN
     Route: 042
     Dates: start: 20170609
  12. LUPRAC [Concomitant]
     Active Substance: TORSEMIDE
  13. EPOPROSTENOL ACT [Suspect]
     Active Substance: EPOPROSTENOL
     Indication: PULMONARY ARTERIAL HYPERTENSION
     Dosage: 121.8 NG/KG, PER MIN
     Route: 042
     Dates: start: 20150205
  14. EPOPROSTENOL ACT [Suspect]
     Active Substance: EPOPROSTENOL
     Dosage: 141.7 NG/KG, PER MIN
     Route: 042
     Dates: start: 20170913, end: 20170921
  15. GASMOTIN [Concomitant]
     Active Substance: MOSAPRIDE CITRATE
  16. TRACLEER [Concomitant]
     Active Substance: BOSENTAN
  17. EPOPROSTENOL ACT [Suspect]
     Active Substance: EPOPROSTENOL
     Dosage: 143.0 NG/KG, PER MIN
     Route: 042
     Dates: start: 20151015
  18. EPOPROSTENOL ACT [Suspect]
     Active Substance: EPOPROSTENOL
     Dosage: 143.0 NG/KG, PER MIN
     Route: 042
     Dates: start: 20170522
  19. CODEINE PHOSPHATE [Concomitant]
     Active Substance: CODEINE PHOSPHATE
  20. EPOPROSTENOL ACT [Suspect]
     Active Substance: EPOPROSTENOL
     Dosage: 141.8 NG/KG, PER MIN
     Route: 042
     Dates: start: 20180522
  21. KLARICID [Concomitant]
     Active Substance: CLARITHROMYCIN
  22. BIOFERMIN [Concomitant]
     Active Substance: DIETARY SUPPLEMENT\PROBIOTICS
  23. ADEMPAS [Concomitant]
     Active Substance: RIOCIGUAT
  24. TREPROST [Concomitant]
     Active Substance: TREPROSTINIL
  25. EPOPROSTENOL ACT [Suspect]
     Active Substance: EPOPROSTENOL
     Dosage: 135.5 NG/KG, PER MIN
     Route: 042
     Dates: start: 20150618
  26. PRIMPERAN [Concomitant]
     Active Substance: METOCLOPRAMIDE HYDROCHLORIDE
  27. FEBURIC [Concomitant]
     Active Substance: FEBUXOSTAT
  28. ALDACTONE A [Concomitant]
     Active Substance: SPIRONOLACTONE
  29. FLUITRAN [Concomitant]
     Active Substance: TRICHLORMETHIAZIDE
  30. OPSUMIT [Concomitant]
     Active Substance: MACITENTAN

REACTIONS (5)
  - Cardiac failure [Recovered/Resolved]
  - Tachyarrhythmia [Recovered/Resolved]
  - Platelet count decreased [Recovered/Resolved]
  - Autoimmune thyroiditis [Recovering/Resolving]
  - Diarrhoea [Recovered/Resolved]

NARRATIVE: CASE EVENT DATE: 20160714
